FAERS Safety Report 7705242-5 (Version None)
Quarter: 2011Q3

REPORT INFORMATION
  Report Type: 
  Country: None (occurrence: None)
  Receive Date: 20110824
  Receipt Date: 20110817
  Transmission Date: 20111222
  Serious: Yes (Other)
  Sender: FDA-Public Use
  Company Number: US-AMGEN-USASP2011042178

PATIENT
  Sex: Female

DRUGS (1)
  1. EPOGEN [Suspect]
     Indication: DIALYSIS

REACTIONS (12)
  - HAEMATOCRIT DECREASED [None]
  - COORDINATION ABNORMAL [None]
  - MALAISE [None]
  - FATIGUE [None]
  - PULSE PRESSURE INCREASED [None]
  - BALANCE DISORDER [None]
  - GAIT DISTURBANCE [None]
  - CHOKING SENSATION [None]
  - HYPERSOMNIA [None]
  - NAUSEA [None]
  - FEELING ABNORMAL [None]
  - EXERCISE TOLERANCE DECREASED [None]
